FAERS Safety Report 10573692 (Version 2)
Quarter: 2021Q1

REPORT INFORMATION
  Report Type: Report from Study
  Country: US (occurrence: US)
  Receive Date: 20141110
  Receipt Date: 20210224
  Transmission Date: 20210419
  Serious: Yes (Hospitalization)
  Sender: FDA-Public Use
  Company Number: US-TEVA-520675USA

PATIENT
  Age: 55 Year
  Sex: Female
  Weight: 72.46 kg

DRUGS (23)
  1. CARBOPLATIN. [Suspect]
     Active Substance: CARBOPLATIN
     Indication: BREAST CANCER
     Dosage: D1 OF FOUR 21?DAY CYCLES DURING CHEMO SEG 1, AUC = 6
     Route: 042
     Dates: start: 20140521, end: 20140730
  2. PACLITAXEL. [Suspect]
     Active Substance: PACLITAXEL
     Indication: BREAST CANCER
     Dosage: DAY 1 OF 12 WEEKLY CYCLES DURING CHEMOTHERAPY SEGMENT 1 (80 MG/M2)
     Route: 042
     Dates: start: 20140521, end: 20140716
  3. PEPCID?F [Concomitant]
     Indication: PREMEDICATION
     Dosage: AS REQUIRED
     Route: 040
     Dates: start: 20140521
  4. LORAZEPAM. [Concomitant]
     Active Substance: LORAZEPAM
     Indication: NAUSEA
  5. ONDANSETRON [Concomitant]
     Active Substance: ONDANSETRON
     Indication: NAUSEA
     Dosage: AS REQUIRED
     Route: 048
     Dates: start: 20140523
  6. PROMETHAZINE [Concomitant]
     Active Substance: PROMETHAZINE HYDROCHLORIDE
     Indication: NAUSEA
     Dosage: AS REQUIRED
     Route: 048
     Dates: start: 20140523
  7. LORAZEPAM. [Concomitant]
     Active Substance: LORAZEPAM
     Indication: ANXIETY
     Route: 048
     Dates: start: 20140506
  8. HYDROCODONE [Concomitant]
     Active Substance: HYDROCODONE
     Indication: BREAST PAIN
     Dosage: AS REQUIRED
     Route: 048
     Dates: start: 20140523
  9. DEXAMETHASONE. [Concomitant]
     Active Substance: DEXAMETHASONE
     Indication: PREMEDICATION
     Dosage: AS REQUIRED
     Route: 041
     Dates: start: 20140521, end: 20140813
  10. IBUPROFEN. [Concomitant]
     Active Substance: IBUPROFEN
     Indication: PREMEDICATION
     Dosage: AS REQUIRED
     Route: 048
     Dates: start: 20140521
  11. NEUPOGEN [Concomitant]
     Active Substance: FILGRASTIM
     Dosage: AS REQUIRED
     Dates: start: 20140702
  12. ACETAMINOPHEN. [Concomitant]
     Active Substance: ACETAMINOPHEN
     Indication: PREMEDICATION
     Dosage: AS REQUIRED
     Route: 048
     Dates: start: 20140521
  13. DOXORUBICIN [Suspect]
     Active Substance: DOXORUBICIN
     Indication: BREAST CANCER
     Dosage: D1 OF FOUR 14?DAY CYCLES (DOSE DENSE) OR FOUR 21?DAY CYCLES DURING, CHEMOTHERAPY SEGMENT 2 (60 MG/M2
     Route: 042
     Dates: start: 20140828
  14. PACLITAXEL. [Suspect]
     Active Substance: PACLITAXEL
     Dosage: DAY 1 OF 12 WEEKLY CYCLES DURING CHEMOTHERAPY SEGMENT 1
     Route: 042
     Dates: start: 20140723, end: 20140813
  15. CYCLOPHOSPHAMIDE. [Suspect]
     Active Substance: CYCLOPHOSPHAMIDE
     Indication: BREAST CANCER
     Dosage: D1 OF FOUR 14?DAY CYCLES (DOSE DENSE) OR FOUR 21?DAY CYCLES DURING, CHEMOTHERAPY SEGMENT 2 (600 MG/M
     Route: 042
     Dates: start: 20140828
  16. OXYCODONE HYDROCHLORIDE. [Concomitant]
     Active Substance: OXYCODONE HYDROCHLORIDE
     Dosage: AS REQUIRED
     Route: 048
     Dates: start: 20140613
  17. PROCET [Concomitant]
     Indication: BREAST PAIN
     Dosage: 10/325 MG AS REQUIRED
     Route: 048
     Dates: start: 20140512
  18. DEXAMETHASONE. [Concomitant]
     Active Substance: DEXAMETHASONE
     Indication: PROPHYLACTIC CHEMOTHERAPY
     Dosage: 6 HRS AND 12 HRS PRIOR TO CHEMOTHERAPY EACH CYCLE DAY 1
     Dates: start: 20140520
  19. HYDROCODONE [Concomitant]
     Active Substance: HYDROCODONE
     Dosage: AS REQUIRED
     Route: 048
     Dates: start: 20140613
  20. RANITIDINE. [Concomitant]
     Active Substance: RANITIDINE
     Indication: PROPHYLACTIC CHEMOTHERAPY
     Dosage: 300 MILLIGRAM DAILY;
     Route: 048
     Dates: start: 20140512
  21. OXYCODONE HYDROCHLORIDE. [Concomitant]
     Active Substance: OXYCODONE HYDROCHLORIDE
     Indication: PAIN
     Dosage: AS REQUIRED
     Route: 048
     Dates: start: 20140613
  22. ALOXI [Concomitant]
     Active Substance: PALONOSETRON HYDROCHLORIDE
     Indication: PREMEDICATION
     Dosage: AS REQUIRED
     Route: 040
     Dates: start: 20140521
  23. NEULASTA [Concomitant]
     Active Substance: PEGFILGRASTIM
     Indication: NEUTROPENIA
     Dosage: AS REQUIRED
     Route: 058
     Dates: start: 20140828

REACTIONS (2)
  - Anaemia [Recovered/Resolved]
  - Dehydration [Recovered/Resolved]

NARRATIVE: CASE EVENT DATE: 20141003
